FAERS Safety Report 6784304-3 (Version None)
Quarter: 2010Q2

REPORT INFORMATION
  Report Type: 
  Country: None (occurrence: None)
  Receive Date: 20100622
  Receipt Date: 20100614
  Transmission Date: 20101027
  Serious: Yes (Other)
  Sender: FDA-Public Use
  Company Number: GXKR2010GB03023

PATIENT
  Age: 75 Year
  Sex: Male

DRUGS (6)
  1. AMOXICILLIN [Suspect]
     Route: 065
  2. EPILIM [Suspect]
     Indication: CONVULSION
     Dosage: 400 MG, QD
     Route: 042
     Dates: start: 20100213
  3. ACETYLSALICYLIC ACID [Concomitant]
     Indication: THROMBOSIS PROPHYLAXIS
     Dosage: UNK
     Route: 048
     Dates: end: 20100213
  4. DIPYRIDAMOLE [Concomitant]
     Indication: THROMBOSIS PROPHYLAXIS
     Dosage: UNK
     Route: 048
     Dates: end: 20100213
  5. NULYTELY [Concomitant]
     Indication: LAXATIVE SUPPORTIVE CARE
     Dosage: UNK
     Route: 048
     Dates: end: 20100213
  6. SIMVASTATIN [Concomitant]
     Indication: BLOOD CHOLESTEROL INCREASED
     Dosage: UNK
     Route: 048
     Dates: end: 20100213

REACTIONS (2)
  - CONVULSION [None]
  - INTERNATIONAL NORMALISED RATIO INCREASED [None]
